FAERS Safety Report 7627705-3 (Version None)
Quarter: 2011Q3

REPORT INFORMATION
  Report Type: 
  Country: None (occurrence: None)
  Receive Date: 20110721
  Receipt Date: 20110715
  Transmission Date: 20111222
  Serious: Yes (Life-Threatening, Hospitalization)
  Sender: FDA-Public Use
  Company Number: US-PFIZER INC-2011153443

PATIENT
  Sex: Male
  Weight: 74.83 kg

DRUGS (16)
  1. METHADONE [Concomitant]
     Indication: MUSCLE SPASMS
     Dosage: UNK
  2. METHADONE [Concomitant]
     Indication: NECK PAIN
  3. VICODIN [Concomitant]
  4. KLONOPIN [Concomitant]
  5. VICODIN [Concomitant]
     Indication: MUSCLE SPASMS
     Dosage: 10 MG, 3-4 TIMES DAILY, AS NEEDED
     Route: 048
  6. CHANTIX [Suspect]
     Indication: SMOKING CESSATION THERAPY
     Dosage: 0.5 MG, 1X/DAY
     Route: 048
     Dates: start: 20110705, end: 20110708
  7. VICODIN [Concomitant]
     Indication: NECK PAIN
  8. KLONOPIN [Concomitant]
     Indication: NECK PAIN
  9. KLONOPIN [Concomitant]
     Indication: MUSCLE SPASMS
     Dosage: 1 MG, UNK
     Route: 048
  10. METHADONE [Concomitant]
  11. METHADONE [Concomitant]
     Indication: MUSCULOSKELETAL PAIN
  12. VICODIN [Concomitant]
  13. VICODIN [Concomitant]
     Indication: MUSCULOSKELETAL PAIN
  14. KLONOPIN [Concomitant]
     Indication: MUSCULOSKELETAL PAIN
  15. METHADONE [Concomitant]
  16. KLONOPIN [Concomitant]

REACTIONS (5)
  - DYSPNOEA [None]
  - OROPHARYNGEAL PAIN [None]
  - PHARYNGEAL OEDEMA [None]
  - PHARYNGEAL ERYTHEMA [None]
  - THROAT TIGHTNESS [None]
